FAERS Safety Report 8456193-2 (Version None)
Quarter: 2012Q2

REPORT INFORMATION
  Report Type: 
  Country: None (occurrence: None)
  Receive Date: 20120621
  Receipt Date: 20120618
  Transmission Date: 20120825
  Serious: Yes (Other)
  Sender: FDA-Public Use
  Company Number: PHHY2012IE040641

PATIENT
  Sex: Female

DRUGS (10)
  1. ANTICOAGULANTS [Concomitant]
  2. ESCITALOPRAM [Concomitant]
     Indication: DEPRESSION
     Dosage: 20 MG, QD
     Route: 048
  3. CLOPIDOGREL [Concomitant]
     Dosage: 70 MG, QD
     Route: 048
  4. FOLIC ACID [Concomitant]
     Dosage: 5 MG, QD
     Route: 048
  5. ASPIRIN [Concomitant]
     Dosage: 70 MG, QD
     Route: 048
  6. GILENYA [Suspect]
     Indication: MULTIPLE SCLEROSIS
     Dosage: 0.5 MG, QD
     Route: 048
     Dates: start: 20120213, end: 20120518
  7. GILENYA [Suspect]
     Dosage: 0.5 MG, QD
     Dates: start: 20120530
  8. CALCICHEW D3 [Concomitant]
     Route: 048
  9. OMEPRAZOLE [Concomitant]
     Indication: HYPERCHLORHYDRIA
     Dosage: 40 MG, QD
     Route: 048
  10. ATORVASTATIN CALCIUM [Concomitant]
     Indication: LIPIDS ABNORMAL
     Dosage: 40 MG, QD
     Route: 048

REACTIONS (1)
  - VISUAL ACUITY REDUCED [None]
